FAERS Safety Report 5285616-5 (Version None)
Quarter: 2007Q1

REPORT INFORMATION
  Report Type: 
  Country: None (occurrence: None)
  Receive Date: 20070116
  Receipt Date: 20061201
  Transmission Date: 20070707
  Serious: No
  Sender: FDA-Public Use
  Company Number: 2006SP004229

PATIENT
  Age: 78 Year
  Sex: Female
  Weight: 56.6996 kg

DRUGS (14)
  1. LUNESTA [Suspect]
     Indication: INSOMNIA
     Dosage: 3 MG; HS; ORAL
     Route: 048
     Dates: start: 20061130
  2. CARDIZEM [Concomitant]
  3. ENALAPRIL MALEATE [Concomitant]
  4. HYDROCHLOROTHIAZIDE [Concomitant]
  5. LEVOTHYROXINE SODIUM [Concomitant]
  6. ASPIRIN [Concomitant]
  7. XANAX [Concomitant]
  8. CRESTOR [Concomitant]
  9. ULTRAM [Concomitant]
  10. LEXAPRO [Concomitant]
  11. HYOSCYAMINE [Concomitant]
  12. ANASTROZOLE [Concomitant]
  13. VITAMIN CAP [Concomitant]
  14. CALTRATE +D [Concomitant]

REACTIONS (1)
  - PARADOXICAL DRUG REACTION [None]
